FAERS Safety Report 5633774-2 (Version None)
Quarter: 2008Q1

REPORT INFORMATION
  Report Type: 
  Country: None (occurrence: None)
  Receive Date: 20080219
  Receipt Date: 20080207
  Transmission Date: 20080703
  Serious: Yes (Hospitalization, Disabling)
  Sender: FDA-Public Use
  Company Number: VE-JNJFOC-20080104424

PATIENT
  Age: 74 Year
  Sex: Female
  Weight: 47 kg

DRUGS (3)
  1. DECITABINE (DECITABINE) LYOPHILIZED POWDER [Suspect]
     Indication: MYELODYSPLASTIC SYNDROME
     Dosage: 15 MG/M2, 2 IN 1 DAY, INTRAVENOUS; 20 MG/M2, INTRAVENOUS
     Route: 042
     Dates: start: 20071226, end: 20071230
  2. DECITABINE (DECITABINE) LYOPHILIZED POWDER [Suspect]
     Indication: MYELODYSPLASTIC SYNDROME
     Dosage: 15 MG/M2, 2 IN 1 DAY, INTRAVENOUS; 20 MG/M2, INTRAVENOUS
     Route: 042
     Dates: start: 20071127
  3. BISOPROLOL (BISOPROLOL) UNSPECIFIED [Concomitant]

REACTIONS (6)
  - HAEMOGLOBIN DECREASED [None]
  - NECROTISING FASCIITIS [None]
  - PLATELET COUNT DECREASED [None]
  - RED BLOOD CELL COUNT DECREASED [None]
  - SKIN INFECTION [None]
  - WHITE BLOOD CELL COUNT DECREASED [None]
